FAERS Safety Report 9084599 (Version 1)
Quarter: 2013Q1

REPORT INFORMATION
  Report Type: Spontaneous
  Country: MX (occurrence: MX)
  Receive Date: 20130130
  Receipt Date: 20130130
  Transmission Date: 20140127
  Serious: Yes (Other)
  Sender: FDA-Public Use
  Company Number: PHHY2013MX006907

PATIENT
  Sex: Male

DRUGS (6)
  1. RASILEZ [Suspect]
     Indication: HYPERTENSION
     Dosage: 1 DF, DAILY
     Route: 048
     Dates: end: 201211
  2. DEXLANSOPRAZOLE [Concomitant]
     Indication: ABDOMINAL DISCOMFORT
     Dosage: 1 UKN, DAILY
     Dates: start: 201211
  3. GLIMEPIRIDE [Concomitant]
     Indication: BLOOD GLUCOSE ABNORMAL
     Dosage: 2 UKN, DAILY
  4. LEVOTHYROXINE [Concomitant]
     Indication: THYROID DISORDER
     Dosage: 1 UKN, DAILY
     Dates: start: 201208
  5. LORATADINE [Concomitant]
     Indication: INFLUENZA
     Dosage: 1 UKN, DAILY
     Dates: start: 201301
  6. ASPIRINE PROTECT [Concomitant]
     Indication: CARDIAC DISORDER
     Dosage: 1 DF, DAILY
     Dates: start: 201301

REACTIONS (3)
  - Renal disorder [Not Recovered/Not Resolved]
  - Arrhythmia [Not Recovered/Not Resolved]
  - Cardiac disorder [Not Recovered/Not Resolved]
